FAERS Safety Report 13378933 (Version 1)
Quarter: 2017Q1

REPORT INFORMATION
  Report Type: Spontaneous
  Country: US (occurrence: US)
  Receive Date: 20170328
  Receipt Date: 20170328
  Transmission Date: 20170429
  Serious: No
  Sender: FDA-Public Use
  Company Number: None

PATIENT

DRUGS (2)
  1. PRIVIGEN [Suspect]
     Active Substance: HUMAN IMMUNOGLOBULIN G
  2. PREVAGEN [Suspect]
     Active Substance: DIETARY SUPPLEMENT

REACTIONS (1)
  - Product name confusion [None]

NARRATIVE: CASE EVENT DATE: 20170102
